FAERS Safety Report 8336479-2 (Version None)
Quarter: 2012Q2

REPORT INFORMATION
  Report Type: 
  Country: None (occurrence: None)
  Receive Date: 20120504
  Receipt Date: 20120502
  Transmission Date: 20120825
  Serious: Yes (Other)
  Sender: FDA-Public Use
  Company Number: PHHY2012TW035245

PATIENT
  Age: 70 Year
  Sex: Female

DRUGS (1)
  1. ZOLEDRONOC ACID [Suspect]
     Indication: OSTEOPOROSIS
     Dosage: UNK UKN, UNK
     Route: 042

REACTIONS (12)
  - IMPAIRED HEALING [None]
  - HAEMORRHAGE [None]
  - OSTEOMYELITIS [None]
  - INFLAMMATION [None]
  - ULCER [None]
  - PAIN [None]
  - OSTEONECROSIS OF JAW [None]
  - TOOTHACHE [None]
  - MASTICATION DISORDER [None]
  - DENTAL CARIES [None]
  - GINGIVAL INFECTION [None]
  - FATIGUE [None]
